FAERS Safety Report 16843447 (Version 1)
Quarter: 2019Q3

REPORT INFORMATION
  Report Type: Spontaneous
  Country: US (occurrence: US)
  Receive Date: 20190802
  Receipt Date: 20190802
  Transmission Date: 20191005
  Serious: No
  Sender: FDA-Public Use
  Company Number: None

PATIENT
  Age: 64 Year
  Sex: Male
  Weight: 133.36 kg

DRUGS (4)
  1. TOLTERODINE TARTRATE EXTENDED RELEASE [Suspect]
     Active Substance: TOLTERODINE TARTRATE
     Indication: NEOPLASM MALIGNANT
     Route: 048
     Dates: start: 20180112, end: 2019
  2. OXYBUTYNIN 5MG [Suspect]
     Active Substance: OXYBUTYNIN
     Indication: PROSTATE CANCER
     Route: 048
     Dates: start: 20171025, end: 20180112
  3. TOLTERODINE TARTRATE EXTENDED RELEASE [Suspect]
     Active Substance: TOLTERODINE TARTRATE
     Indication: BLADDER IRRITATION
     Route: 048
     Dates: start: 20180112, end: 2019
  4. TOLTERODINE TARTRATE EXTENDED RELEASE [Suspect]
     Active Substance: TOLTERODINE TARTRATE
     Indication: RADIATION INJURY
     Route: 048
     Dates: start: 20180112, end: 2019

REACTIONS (6)
  - Urinary retention [None]
  - Urine flow decreased [None]
  - Micturition urgency [None]
  - Micturition disorder [None]
  - Drug ineffective [None]
  - Nocturia [None]
